FAERS Safety Report 7747441-2 (Version None)
Quarter: 2011Q3

REPORT INFORMATION
  Report Type: 
  Country: None (occurrence: None)
  Receive Date: 20110909
  Receipt Date: 20110826
  Transmission Date: 20111222
  Serious: Yes (Hospitalization)
  Sender: FDA-Public Use
  Company Number: IPC201108-003163

PATIENT
  Age: 27 Year
  Sex: Female

DRUGS (4)
  1. KETOPROFEN [Suspect]
  2. ANTIBIOTICS [Suspect]
  3. SIBUTRAMINE HYDROCHLORIDE MONOHYDRATE [Suspect]
  4. METOCLOPRAMIDE HYDROCHLORIDE [Suspect]

REACTIONS (6)
  - QUADRIPLEGIA [None]
  - HYPONATRAEMIA [None]
  - PORPHYRIA ACUTE [None]
  - NEURALGIA [None]
  - CONVULSION [None]
  - HEPATIC ENZYME INCREASED [None]
